FAERS Safety Report 15388700 (Version 1)
Quarter: 2018Q3

REPORT INFORMATION
  Report Type: Spontaneous
  Country: US (occurrence: US)
  Receive Date: 20180907
  Receipt Date: 20180907
  Transmission Date: 20181010
  Serious: No
  Sender: FDA-Public Use
  Company Number: None

PATIENT
  Age: 71 Year
  Sex: Female
  Weight: 72.57 kg

DRUGS (1)
  1. NINLARO [Suspect]
     Active Substance: IXAZOMIB CITRATE
     Indication: PLASMA CELL MYELOMA RECURRENT
     Dosage: OTHER FREQUENCY:3 DAYS A MONTH;?
     Route: 048
     Dates: start: 20180807, end: 20180828

REACTIONS (1)
  - Vomiting [None]

NARRATIVE: CASE EVENT DATE: 20180827
